FAERS Safety Report 9113104 (Version 1)
Quarter: 2013Q1

REPORT INFORMATION
  Report Type: Spontaneous
  Country: US (occurrence: US)
  Receive Date: 20130211
  Receipt Date: 20130211
  Transmission Date: 20140127
  Serious: No
  Sender: FDA-Public Use
  Company Number: US-009507513-1302USA003319

PATIENT
  Age: 28 Year
  Sex: Female
  Weight: 86.17 kg

DRUGS (1)
  1. IMPLANON [Suspect]
     Indication: CONTRACEPTION
     Dosage: EVERY 3 YEARS
     Route: 059
     Dates: start: 20110908

REACTIONS (5)
  - Chest pain [Recovered/Resolved]
  - Depression [Unknown]
  - Mood swings [Unknown]
  - Nausea [Recovered/Resolved]
  - Headache [Recovered/Resolved]
